FAERS Safety Report 5412862-X (Version None)
Quarter: 2007Q3

REPORT INFORMATION
  Report Type: 
  Country: None (occurrence: None)
  Receive Date: 20070713
  Receipt Date: 20070511
  Transmission Date: 20080115
  Serious: No
  Sender: FDA-Public Use
  Company Number: 2007SP001766

PATIENT
  Age: 54 Year
  Sex: Female
  Weight: 81.6475 kg

DRUGS (5)
  1. LUNESTA [Suspect]
     Indication: INSOMNIA
     Dosage: 3 MG; PRN; ORAL
     Route: 048
     Dates: start: 20070101
  2. ANTIHYPERTENSIVES [Concomitant]
  3. ESTROGENS CONJUGATED [Concomitant]
  4. MULTIVITAMIN [Concomitant]
  5. LOTENSIN [Concomitant]

REACTIONS (1)
  - INSOMNIA [None]
